FAERS Safety Report 7422053-9 (Version None)
Quarter: 2011Q2

REPORT INFORMATION
  Report Type: 
  Country: None (occurrence: None)
  Receive Date: 20110418
  Receipt Date: 20110412
  Transmission Date: 20111010
  Serious: Yes (Hospitalization, Other)
  Sender: FDA-Public Use
  Company Number: US-ABBOTT-11P-163-0700583-00

PATIENT
  Sex: Female
  Weight: 96.702 kg

DRUGS (23)
  1. HYDROCHLOROTHIAZIDE [Concomitant]
     Indication: PRODUCT USED FOR UNKNOWN INDICATION
     Route: 048
  2. FAMOTIDINE [Concomitant]
     Indication: PRODUCT USED FOR UNKNOWN INDICATION
     Route: 048
  3. METHOTREXATE [Concomitant]
     Indication: PRODUCT USED FOR UNKNOWN INDICATION
     Route: 048
  4. VENTOLIN [Concomitant]
     Indication: PRODUCT USED FOR UNKNOWN INDICATION
  5. ASTELIN [Concomitant]
     Indication: PRODUCT USED FOR UNKNOWN INDICATION
     Route: 045
  6. LORATADINE [Concomitant]
     Indication: PRODUCT USED FOR UNKNOWN INDICATION
     Route: 048
  7. VENTOLIN HFA [Concomitant]
     Indication: PRODUCT USED FOR UNKNOWN INDICATION
     Dosage: 108 (90 BASE) MCG/ACT, 2 PUFF Q4-6H
     Route: 055
  8. HYDROXYCHLOROQUINE SULFATE [Concomitant]
     Indication: PRODUCT USED FOR UNKNOWN INDICATION
     Dosage: 1 TABLET BID WITH OR SOON AFTER MEALS
     Route: 048
  9. VISTARIL [Concomitant]
     Indication: PRODUCT USED FOR UNKNOWN INDICATION
     Dosage: 35MG DAILY
  10. BENZOYL PEROXIDE [Concomitant]
     Indication: PRODUCT USED FOR UNKNOWN INDICATION
     Dosage: APPLY TO FACE, LATHER, RINSE DAILY
  11. VITAMIN D [Concomitant]
     Indication: PRODUCT USED FOR UNKNOWN INDICATION
  12. LOSARTAN POTASSIUM [Concomitant]
     Indication: PRODUCT USED FOR UNKNOWN INDICATION
     Dosage: 50 MG QD AS DIRECTED
     Route: 048
  13. FOLIC ACID [Concomitant]
     Indication: PRODUCT USED FOR UNKNOWN INDICATION
     Route: 048
  14. HUMIRA [Suspect]
     Indication: RHEUMATOID ARTHRITIS
     Route: 058
     Dates: start: 20090801, end: 20101201
  15. PERCOCET [Suspect]
     Indication: PRODUCT USED FOR UNKNOWN INDICATION
     Dates: start: 20101201, end: 20101201
  16. NABUMETONE [Concomitant]
     Indication: PRODUCT USED FOR UNKNOWN INDICATION
     Dosage: 1 TABLET BID WITH OR SOON AFTER MEALS
     Route: 048
  17. ALBUTEROL [Concomitant]
     Indication: PRODUCT USED FOR UNKNOWN INDICATION
     Dosage: 2.5MG/3ML/0.083% QID PRN
     Route: 055
  18. HYDROXYZINE [Concomitant]
     Indication: PRODUCT USED FOR UNKNOWN INDICATION
     Dosage: 1 TABLET 3-4 TIMES PER DAY
     Route: 048
  19. LOSARTAN POTASSIUM [Concomitant]
     Indication: PRODUCT USED FOR UNKNOWN INDICATION
  20. ADVAIR DISKUS 100/50 [Concomitant]
     Indication: PRODUCT USED FOR UNKNOWN INDICATION
     Dosage: 250/50MCG BID
  21. EPIPEN [Concomitant]
     Indication: HYPERSENSITIVITY
     Route: 030
  22. TRANSDERMA SCOP [Concomitant]
     Indication: PRODUCT USED FOR UNKNOWN INDICATION
     Route: 062
  23. HYDROXYZINE PAMOATE [Concomitant]
     Indication: HEADACHE
     Dosage: 1 CAP QID PRN
     Route: 048

REACTIONS (37)
  - JOINT LOCK [None]
  - NERVE COMPRESSION [None]
  - DUPUYTREN'S CONTRACTURE [None]
  - DYSPHAGIA [None]
  - IRRITABLE BOWEL SYNDROME [None]
  - MOBILITY DECREASED [None]
  - ANKLE FRACTURE [None]
  - RASH PRURITIC [None]
  - RASH [None]
  - ASTHMA [None]
  - GASTROINTESTINAL TRACT ADENOMA [None]
  - HYPERTENSION [None]
  - VAGINAL DYSPLASIA [None]
  - DYSPNOEA [None]
  - ERYTHEMA [None]
  - SPONDYLITIS [None]
  - ARTHRALGIA [None]
  - PHYSICAL ASSAULT [None]
  - COUGH [None]
  - BASAL CELL CARCINOMA [None]
  - PATELLOFEMORAL PAIN SYNDROME [None]
  - GAIT DISTURBANCE [None]
  - CHOKING SENSATION [None]
  - ANXIETY [None]
  - ANAPHYLACTIC REACTION [None]
  - NAUSEA [None]
  - GASTROOESOPHAGEAL REFLUX DISEASE [None]
  - SLEEP DISORDER [None]
  - HYPERSENSITIVITY [None]
  - URTICARIA [None]
  - LIMB INJURY [None]
  - PRURITUS GENERALISED [None]
  - PRURITUS [None]
  - DERMATITIS CONTACT [None]
  - CUBITAL TUNNEL SYNDROME [None]
  - FIBROMYALGIA [None]
  - ENTHESOPATHY [None]
